FAERS Safety Report 24147094 (Version 1)
Quarter: 2024Q3

REPORT INFORMATION
  Report Type: Report from Study
  Country: US (occurrence: US)
  Receive Date: 20240729
  Receipt Date: 20240729
  Transmission Date: 20241017
  Serious: Yes (Death)
  Sender: ABBVIE
  Company Number: US-ABBVIE-5856307

PATIENT
  Sex: Male

DRUGS (46)
  1. VENCLEXTA [Suspect]
     Active Substance: VENETOCLAX
     Indication: Acute myeloid leukaemia
     Dosage: TAKE TWO TABLET BY MOUTH DAILY WITH BREAKFAST
     Route: 048
  2. VENCLEXTA [Suspect]
     Active Substance: VENETOCLAX
     Indication: Acute myeloid leukaemia
     Dosage: 50 MG TABLET?TAKE 1 TABLET (50 MG TOTAL)? BY MOUTH DAILY (WITH? BREAKFAST) WITH 1 OTHER? VENETOCL...
     Route: 048
     Dates: start: 202405, end: 202405
  3. VENCLEXTA [Suspect]
     Active Substance: VENETOCLAX
     Indication: Acute myeloid leukaemia
     Dosage: TAKE ONE TABLET BY MOUTH DAILY WITH BREAKFAST
     Route: 048
  4. VENCLEXTA [Suspect]
     Active Substance: VENETOCLAX
     Indication: Acute myeloid leukaemia
     Dosage: 10 MG TABLET?TAKE 2 TABLETS (20 MG? TOTAL) BY MOUTH DAILY (WITH? BREAKFAST) WITH 1 OTHER? VENETOC...
     Route: 048
     Dates: start: 20240513, end: 20240513
  5. VENCLEXTA [Suspect]
     Active Substance: VENETOCLAX
     Indication: Acute myeloid leukaemia
     Dosage: TABLET 70 MG?70 MG DAILY WITH? BREAKFAST?ADMIN INSTRUCTIONS: DO? NOT CHEW, CRUSH, OR BREAK? TABLE...
     Route: 048
     Dates: start: 20240516, end: 20240516
  6. VENCLEXTA [Suspect]
     Active Substance: VENETOCLAX
     Indication: Acute myeloid leukaemia
     Route: 048
  7. VENCLEXTA [Suspect]
     Active Substance: VENETOCLAX
     Indication: Acute myeloid leukaemia
     Route: 048
  8. VENCLEXTA [Suspect]
     Active Substance: VENETOCLAX
     Indication: Acute myeloid leukaemia
     Route: 048
  9. VENCLEXTA [Suspect]
     Active Substance: VENETOCLAX
     Indication: Acute myeloid leukaemia
     Route: 048
  10. ZYLOPRIM [Concomitant]
     Active Substance: ALLOPURINOL
     Indication: Product used for unknown indication
     Dosage: TAKE ONE TABLET BY MOUTH TWO TIMES DAILY AS INSTRUCTED TWO TO THREE DAYS PRIOR TO START OF CHEMO....
     Route: 048
  11. ARICEPT [Concomitant]
     Active Substance: DONEPEZIL HYDROCHLORIDE
     Indication: Product used for unknown indication
     Dosage: 10 MG TABLET 25-SEP-2023 TAKE 1 TABLET BY MOUTH DAILY - MEMORY
     Route: 048
     Dates: start: 20230925
  12. FOLIC ACID [Concomitant]
     Active Substance: FOLIC ACID
     Indication: Folate deficiency
     Dosage: FOLIC ACID 1 MG TABLET TAKE 1 TABLET BY MOUTH DAILY. NOTES TO PHARMACY FOLIC ACID DEFICIENCY 266.2
     Route: 048
     Dates: start: 20230925
  13. FOLIC ACID [Concomitant]
     Active Substance: FOLIC ACID
     Indication: Folate deficiency
     Dosage: TAKE 1 TABLET BY MOUTH DAILY
     Route: 048
     Dates: start: 20240425
  14. XYZAL [Concomitant]
     Active Substance: LEVOCETIRIZINE DIHYDROCHLORIDE
     Indication: Product used for unknown indication
     Dosage: 5 MG TABLET TAKE ONE TABLET BY MOUTH EVERY EVENING
     Route: 048
     Dates: start: 20240205
  15. ZOFRAN [Concomitant]
     Active Substance: ONDANSETRON HYDROCHLORIDE
     Indication: Nausea
     Dosage: 8 MG TABLET TAKE 1 TABLET BY MOUTH EVERY 8 HOURS AS NEEDED
     Route: 048
     Dates: start: 20240429, end: 20240429
  16. ZOFRAN [Concomitant]
     Active Substance: ONDANSETRON HYDROCHLORIDE
     Indication: Nausea
     Dosage: INJECTION 4 MG EVERY 6 HOURS PRN IV FIRST LINE AGENT. USE ORAL OPTION UNLESS NPO STATUS OR UNABLE...
     Route: 042
     Dates: start: 20240429, end: 20240429
  17. PROCHLORPERAZINE [Concomitant]
     Active Substance: PROCHLORPERAZINE
     Indication: Nausea
     Dosage: 10 MG TABLET 29-APR-2024 TAKE 1 TABLET BY MOUTH EVERY 6 HOURS AS NEEDED
     Route: 048
     Dates: start: 20240429
  18. HYTRIN [Concomitant]
     Active Substance: TERAZOSIN HYDROCHLORIDE
     Indication: Nausea
     Dosage: IN NIGHT
     Route: 048
     Dates: start: 20230324
  19. HYTRIN [Concomitant]
     Active Substance: TERAZOSIN HYDROCHLORIDE
     Indication: Nausea
     Dosage: IN NIGHT
     Route: 048
     Dates: start: 20240425
  20. TYLENOL [Concomitant]
     Active Substance: ACETAMINOPHEN
     Indication: Pain
     Route: 048
     Dates: start: 20240424
  21. ZOVIRAX [Concomitant]
     Active Substance: ACYCLOVIR
     Indication: Product used for unknown indication
     Dosage: TIME INTERVAL: 0.33333333 DAYS
     Dates: start: 20240425
  22. MAALOX ANTACID [Concomitant]
     Active Substance: ALUMINUM HYDROXIDE\DIMETHICONE\MAGNESIUM HYDROXIDE
     Indication: Product used for unknown indication
     Dosage: 200-200-20MG IN 5ML SUSPENSION
     Route: 048
     Dates: start: 20240424
  23. NORCO [Concomitant]
     Active Substance: ACETAMINOPHEN\HYDROCODONE BITARTRATE
     Indication: Product used for unknown indication
     Dosage: NORCO 5-325 MG PER 1 TABLET EVERY 4 HOURS ADMIN INSTRUCTIONS: FOR MODERATE PAIN USE NSALDS FIRST ...
     Route: 048
  24. DILAUDID [Concomitant]
     Active Substance: HYDROMORPHONE HYDROCHLORIDE
     Indication: Product used for unknown indication
     Dosage: DILAUDIO INJECTION 0.5 MG EVERY 3 HOURS PRN ADMIN INSTRUCTIONS: IF ORAL ROUTE NOT AN OPTION. SLOW...
     Route: 042
     Dates: start: 20240424
  25. LEVAQUIN [Concomitant]
     Active Substance: LEVOFLOXACIN
     Indication: Product used for unknown indication
     Dosage: LEVAQUIN TABLET 500 MG TABLET DAILY 30-APR-2024 ADMIN INSTRUCTIONS: THIS ANTIBIOTIC IS RESERVED F...
     Route: 048
     Dates: start: 20240430
  26. MELATONIN [Concomitant]
     Active Substance: MELATONIN
     Indication: Product used for unknown indication
     Dosage: TABLET 0.5 MG NIGHTLY PRN ADMIN INSTRUCTIONS: MAY GIVE MORE THAN ONE HYPNOTIC IF ORDERED. BEGIN W...
     Route: 048
     Dates: start: 20240424
  27. NAMENDA [Concomitant]
     Active Substance: MEMANTINE HYDROCHLORIDE
     Indication: Product used for unknown indication
     Route: 048
  28. MIRALAX [Concomitant]
     Active Substance: POLYETHYLENE GLYCOL 3350
     Indication: Product used for unknown indication
  29. SYNTHROID [Concomitant]
     Active Substance: LEVOTHYROXINE SODIUM
     Indication: Product used for unknown indication
     Dosage: 50 MCG TABLET TAKE 1 TABLET BY MOUTH EVERY MORNING (BEFORE BREAKFAST).
     Route: 048
     Dates: start: 20240426
  30. SYNTHROID [Concomitant]
     Active Substance: LEVOTHYROXINE SODIUM
     Indication: Product used for unknown indication
     Dosage: 50 MCG TABLET TAKE 1 TABLET BY MOUTH EVERY MORNING (BEFORE BREAKFAST). NOTES TO PHARMACY: THIS RE...
     Route: 048
     Dates: start: 20230825
  31. CARDIZEM CD [Concomitant]
     Active Substance: DILTIAZEM HYDROCHLORIDE
     Indication: Product used for unknown indication
     Dosage: CARDIZEM CD 24 HR CAPSULE 120 MG ADMIN INSTRUCTIONS: HOLD FOR SBP{ 100 HR{ 60 DO NOT OPEN, CHEW, ...
     Route: 048
     Dates: start: 20240429
  32. FENTANYL [Concomitant]
     Active Substance: FENTANYL\FENTANYL CITRATE
     Indication: Product used for unknown indication
     Dosage: FENTANYL (PF) INJECTION 25-100 MCG PRN
     Route: 042
     Dates: start: 20240425
  33. BENADRYL [Concomitant]
     Active Substance: DIPHENHYDRAMINE HYDROCHLORIDE
     Indication: Product used for unknown indication
     Route: 048
     Dates: start: 20240512
  34. COLACE [Concomitant]
     Active Substance: DOCUSATE SODIUM
     Indication: Product used for unknown indication
     Dosage: CAPSULE 100 MG 2 TIMES DAILY PRN ADMIN INSTRUCTIONS: SWALLOW CAPSULE WHOLE
     Route: 048
     Dates: start: 20240504
  35. Senokot- S [Concomitant]
     Indication: Product used for unknown indication
     Dosage: 50-8.6 MG PER DAILY PRN TABLET 2 TABLET
     Route: 048
     Dates: start: 20240430
  36. HEPARIN [Concomitant]
     Active Substance: HEPARIN SODIUM
     Indication: Product used for unknown indication
     Dosage: HEPARIN (PF) 100 UNITS/ML FLUSH INJECTION 500 UNITS ROUTE: INTRACATHETER
     Route: 065
     Dates: start: 20240505
  37. XOPENEX [Concomitant]
     Active Substance: LEVALBUTEROL HYDROCHLORIDE
     Indication: Product used for unknown indication
     Dosage: XOPENEX NEBULIZER SOLUTION 1.25 MG RT EVERY 4 HOURS PRN ADMIN INSTRUCTIONS: CONCENTRATED SOLUTION...
     Route: 045
     Dates: start: 20240428
  38. MEGACE [Concomitant]
     Active Substance: MEGESTROL ACETATE
     Indication: Product used for unknown indication
     Route: 048
     Dates: start: 20240513
  39. NOXAFIL [Concomitant]
     Active Substance: POSACONAZOLE
     Indication: Product used for unknown indication
     Route: 048
     Dates: start: 20240704
  40. SODIUM CHLORIDE [Concomitant]
     Active Substance: SODIUM CHLORIDE
     Indication: Product used for unknown indication
     Dosage: SDIUM CHLORIDE 0.9% (NS) BOLUS 5OO ML 16-MAY-2024 16-MAY-2024 ROUTE: INTRAVENOUS
     Route: 042
     Dates: start: 20240516, end: 20240516
  41. SODIUM CHLORIDE [Concomitant]
     Active Substance: SODIUM CHLORIDE
     Indication: Product used for unknown indication
     Dosage: SODIUM CHLORIDE 0.9% FLUSH? 10 ML 05-MAY-2024?ROUTE: INTRACATHETER
     Route: 042
     Dates: start: 20240505, end: 20240505
  42. SODIUM CHLORIDE [Concomitant]
     Active Substance: SODIUM CHLORIDE
     Indication: Product used for unknown indication
     Dosage: SODIUM CHLORIDE 0.9%? (NS) BOLUS 250 ML. 05-?MAY-2024?ROUTE: INTRAVENOUS
     Route: 042
     Dates: start: 20240505, end: 20240505
  43. CARAFATE [Concomitant]
     Active Substance: SUCRALFATE
     Indication: Product used for unknown indication
     Dates: start: 20240507
  44. AMBIEN [Concomitant]
     Active Substance: ZOLPIDEM TARTRATE
     Indication: Product used for unknown indication
  45. CHLORHEXIDINE GLUCONATE [Concomitant]
     Active Substance: CHLORHEXIDINE GLUCONATE
     Indication: Product used for unknown indication
     Dosage: 2 PERCENT PADS EVERY 24 HOURS ADMIN INSTRUCTIONS: PERFORM CHG BATH EVERY 24 HOURS (SET TIME OF DA...
     Route: 065
     Dates: start: 20240425
  46. HEPARIN [Concomitant]
     Active Substance: HEPARIN SODIUM
     Indication: Product used for unknown indication
     Dosage: HEPARIN (PF) 100 UNITS/ML FLUSH INJECTION 500 UNITS ROUTE: INTRACATHETER

REACTIONS (1)
  - Death [Fatal]

NARRATIVE: CASE EVENT DATE: 20240101
